FAERS Safety Report 15703085 (Version 1)
Quarter: 2018Q4

REPORT INFORMATION
  Report Type: Spontaneous
  Country: US (occurrence: US)
  Receive Date: 20181208
  Receipt Date: 20181208
  Transmission Date: 20190205
  Serious: Yes (Other)
  Sender: FDA-Public Use
  Company Number: None

PATIENT
  Age: 49 Year
  Sex: Female

DRUGS (10)
  1. OMEPRAZOLE. [Concomitant]
     Active Substance: OMEPRAZOLE
  2. LISINOPRIL. [Concomitant]
     Active Substance: LISINOPRIL
  3. COENZYME Q10 [Concomitant]
     Active Substance: UBIDECARENONE
  4. CARBAMAZEPINE 200 MG TABLET [Suspect]
     Active Substance: CARBAMAZEPINE
     Indication: NEURALGIA
     Dosage: ?          QUANTITY:135 TABLET(S);OTHER FREQUENCY:200 TID, 300 HS;?
     Route: 048
     Dates: start: 20181202, end: 20181204
  5. INSULIN PUMP WITH NOVALOG INSULIN [Concomitant]
  6. MULTIVITAMIN [Concomitant]
     Active Substance: VITAMINS
  7. VITAMIN B2 [Concomitant]
     Active Substance: RIBOFLAVIN
  8. FISH OIL [Concomitant]
     Active Substance: FISH OIL
  9. CARBAMAZEPINE. [Concomitant]
     Active Substance: CARBAMAZEPINE
  10. ALPHA LIPOIC ACID [Concomitant]
     Active Substance: .ALPHA.-LIPOIC ACID

REACTIONS (3)
  - Pain [None]
  - Drug ineffective [None]
  - Product substitution issue [None]

NARRATIVE: CASE EVENT DATE: 20181202
